FAERS Safety Report 9626525 (Version 1)
Quarter: 2013Q4

REPORT INFORMATION
  Report Type: Spontaneous
  Country: GB (occurrence: GB)
  Receive Date: 20131016
  Receipt Date: 20131016
  Transmission Date: 20140711
  Serious: Yes (Other)
  Sender: FDA-Public Use
  Company Number: GB-EISAI INC-E2007-01354-SPO-GB

PATIENT
  Age: 38 Year
  Sex: Female

DRUGS (3)
  1. FYCOMPA (PERAMPANEL) [Suspect]
     Indication: EPILEPSY
     Route: 048
     Dates: start: 2013
  2. CETIRIZINE [Concomitant]
     Indication: URTICARIA
     Route: 048
     Dates: start: 20130624
  3. TEGRETOL RETARD [Concomitant]
     Indication: EPILEPSY
     Route: 048
     Dates: start: 20130523

REACTIONS (2)
  - Menstruation delayed [Not Recovered/Not Resolved]
  - Rash [Not Recovered/Not Resolved]
